FAERS Safety Report 18322204 (Version 1)
Quarter: 2020Q3

REPORT INFORMATION
  Report Type: Spontaneous
  Country: US (occurrence: US)
  Receive Date: 20200928
  Receipt Date: 20200928
  Transmission Date: 20201103
  Serious: Yes (Other)
  Sender: FDA-Public Use
  Company Number: None

PATIENT
  Age: 42 Year
  Sex: Female
  Weight: 79.2 kg

DRUGS (5)
  1. SPIROLACTONE [Concomitant]
     Active Substance: SPIRONOLACTONE
  2. BIRTH CONTROL [Concomitant]
     Active Substance: UNSPECIFIED INGREDIENT
  3. VITAMIN B12 [Concomitant]
     Active Substance: CYANOCOBALAMIN
  4. ALIVE WITH ENERGY MULTI?VITAMIN [Concomitant]
  5. LOSARTAN POTASSIUM TABLETS USP 100 MG [Suspect]
     Active Substance: LOSARTAN POTASSIUM
     Indication: HYPERTENSION
     Dosage: ?          QUANTITY:1 TABLET(S);?
     Route: 048
     Dates: start: 20200525, end: 20200612

REACTIONS (2)
  - Arrhythmia [None]
  - Headache [None]

NARRATIVE: CASE EVENT DATE: 20200925
